FAERS Safety Report 12548076 (Version 1)
Quarter: 2016Q3

REPORT INFORMATION
  Report Type: Spontaneous
  Country: US (occurrence: US)
  Receive Date: 20160712
  Receipt Date: 20160712
  Transmission Date: 20161109
  Serious: No
  Sender: FDA-Public Use
  Company Number: US-BAYER-2016-135727

PATIENT
  Age: 34 Year
  Sex: Female

DRUGS (1)
  1. ZEGERID OTC CAPSULES [Suspect]
     Active Substance: OMEPRAZOLE\SODIUM BICARBONATE
     Dosage: 1 DF, QD (ON AND OFF FOR 2 YEARS)
     Route: 048
     Dates: start: 2014

REACTIONS (1)
  - Product use issue [None]

NARRATIVE: CASE EVENT DATE: 2014
